FAERS Safety Report 4738964-9 (Version None)
Quarter: 2005Q3

REPORT INFORMATION
  Report Type: 
  Country: None (occurrence: None)
  Receive Date: 20050801
  Receipt Date: 20050511
  Transmission Date: 20060218
  Serious: Yes (Life-Threatening, Hospitalization)
  Sender: FDA-Public Use
  Company Number: 214419

PATIENT
  Age: 79 Year
  Sex: Female
  Weight: 68.5 kg

DRUGS (1)
  1. RITUXAN [Suspect]
     Indication: CHRONIC LYMPHOCYTIC LEUKAEMIA
     Dosage: 660 MG, INTRAVENOUS
     Route: 042

REACTIONS (2)
  - LOSS OF CONSCIOUSNESS [None]
  - RASH [None]
